FAERS Safety Report 9036669 (Version 1)
Quarter: 2013Q1

REPORT INFORMATION
  Report Type: Report from Study
  Country: US (occurrence: US)
  Receive Date: 20130129
  Receipt Date: 20130129
  Transmission Date: 20140127
  Serious: No
  Sender: FDA-Public Use
  Company Number: US-ABBOTT-12P-163-0895898-00

PATIENT
  Age: 58 Year
  Sex: Female
  Weight: 64.47 kg

DRUGS (6)
  1. HUMIRA 40 MG/0.8 ML PEN [Suspect]
     Indication: RHEUMATOID ARTHRITIS
     Dates: start: 2010
  2. HUMIRA 40 MG/0.8 ML PEN [Suspect]
     Indication: PSORIASIS
  3. METHOTREXATE [Concomitant]
     Indication: RHEUMATOID ARTHRITIS
  4. METHOTREXATE [Concomitant]
     Indication: PSORIASIS
  5. FOLIC ACID [Concomitant]
     Indication: PRODUCT USED FOR UNKNOWN INDICATION
  6. PREMPRO [Concomitant]
     Indication: HORMONE REPLACEMENT THERAPY

REACTIONS (9)
  - Oropharyngeal pain [Recovering/Resolving]
  - Ear pain [Recovering/Resolving]
  - Dyspnoea [Recovering/Resolving]
  - Chest pain [Recovering/Resolving]
  - Pneumonia [Recovering/Resolving]
  - Cough [Recovering/Resolving]
  - Respiratory tract congestion [Not Recovered/Not Resolved]
  - Psoriasis [Not Recovered/Not Resolved]
  - Bed rest [Unknown]
